FAERS Safety Report 18533093 (Version 1)
Quarter: 2020Q4

REPORT INFORMATION
  Report Type: Other
  Country: GB (occurrence: GB)
  Receive Date: 20201123
  Receipt Date: 20201123
  Transmission Date: 20210114
  Serious: Yes (Hospitalization, Other)
  Sender: FDA-Public Use
  Company Number: GB-APTAPHARMA INC.-2096171

PATIENT
  Age: 45 Year
  Sex: Female

DRUGS (1)
  1. IBUPROFEN. [Suspect]
     Active Substance: IBUPROFEN
     Indication: PRODUCT USED FOR UNKNOWN INDICATION
     Route: 048

REACTIONS (10)
  - Circulatory collapse [Recovered/Resolved]
  - Overdose [Unknown]
  - Paralysis [Recovered/Resolved]
  - Hyperchloraemia [Recovered/Resolved]
  - Hypoaldosteronism [Recovered/Resolved]
  - Drug dependence [Unknown]
  - Quadriparesis [Recovered/Resolved]
  - Hypokalaemia [Recovered/Resolved]
  - Renal tubular acidosis [Recovered/Resolved]
  - Toxicity to various agents [Unknown]
